FAERS Safety Report 11689153 (Version 1)
Quarter: 2015Q4

REPORT INFORMATION
  Report Type: Spontaneous
  Country: IN (occurrence: IN)
  Receive Date: 20151102
  Receipt Date: 20151102
  Transmission Date: 20160304
  Serious: Yes (Death, Hospitalization)
  Sender: FDA-Public Use
  Company Number: PHHY2015IN140358

PATIENT
  Age: 57 Year
  Sex: Male

DRUGS (1)
  1. ASUNRA [Suspect]
     Active Substance: DEFERASIROX
     Indication: IRON OVERLOAD
     Dosage: 100 MG, QD
     Route: 048
     Dates: start: 20150913, end: 20150916

REACTIONS (2)
  - Dyspnoea [Fatal]
  - Iron overload [Not Recovered/Not Resolved]

NARRATIVE: CASE EVENT DATE: 20150914
